FAERS Safety Report 4530400-0 (Version None)
Quarter: 2004Q4

REPORT INFORMATION
  Report Type: 
  Country: None (occurrence: None)
  Receive Date: 20041215
  Receipt Date: 20041208
  Transmission Date: 20050328
  Serious: Yes (Disabling)
  Sender: FDA-Public Use
  Company Number: 2004UW25143

PATIENT
  Age: 68 Year
  Sex: Female
  Weight: 63 kg

DRUGS (4)
  1. XYLOCAINE [Suspect]
     Indication: NERVE BLOCK
     Dosage: 60 ML DAILY PNEU
     Dates: start: 20040426, end: 20040426
  2. PREDNISONE [Concomitant]
  3. OMEPRAZOLE [Concomitant]
  4. COLCHICINA ^LICRA^ [Concomitant]

REACTIONS (5)
  - ANAESTHETIC COMPLICATION [None]
  - DIAPHRAGMATIC PARALYSIS [None]
  - DYSPNOEA [None]
  - NECK PAIN [None]
  - PAIN IN EXTREMITY [None]
